FAERS Safety Report 7896878-X (Version None)
Quarter: 2011Q4

REPORT INFORMATION
  Report Type: 
  Country: None (occurrence: None)
  Receive Date: 20111107
  Receipt Date: 20100715
  Transmission Date: 20120403
  Serious: No
  Sender: FDA-Public Use
  Company Number: US-BAYER-201028394NA

PATIENT
  Age: 73 Year
  Sex: Male

DRUGS (11)
  1. KETOCONAZOLE [Concomitant]
  2. NIACIN [Concomitant]
  3. CRESTOR [Concomitant]
  4. EXCEDRIN (MIGRAINE) [Concomitant]
  5. LANTUS [Concomitant]
  6. COZAAR [Concomitant]
  7. MULTI-VITAMIN [Concomitant]
  8. LEVOTHROID [Concomitant]
  9. LEVITRA [Suspect]
     Indication: ERECTILE DYSFUNCTION
     Dosage: 20 MG, UNK
     Dates: start: 20100101, end: 20100701
  10. L ARGININ HCL [Concomitant]
  11. ASPIRIN [Concomitant]

REACTIONS (1)
  - ERECTILE DYSFUNCTION [None]
